FAERS Safety Report 15385872 (Version 1)
Quarter: 2018Q3

REPORT INFORMATION
  Report Type: Spontaneous
  Country: US (occurrence: US)
  Receive Date: 20180914
  Receipt Date: 20180914
  Transmission Date: 20181010
  Serious: No
  Sender: FDA-Public Use
  Company Number: US-PERRIGO-17US031473

PATIENT
  Age: 39 Year
  Sex: Female
  Weight: 95.24 kg

DRUGS (1)
  1. CLOBETASOL PROPIONATE. [Suspect]
     Active Substance: CLOBETASOL PROPIONATE
     Indication: DERMATOSIS
     Dosage: ONE APPLICATION, ONCE WEEKLY
     Route: 061
     Dates: start: 20171002

REACTIONS (2)
  - Dandruff [Unknown]
  - Inappropriate schedule of drug administration [Unknown]

NARRATIVE: CASE EVENT DATE: 201710
